FAERS Safety Report 4879194-X (Version None)
Quarter: 2006Q1

REPORT INFORMATION
  Report Type: 
  Country: None (occurrence: None)
  Receive Date: 20060112
  Receipt Date: 20060104
  Transmission Date: 20060701
  Serious: Yes (Death, Hospitalization)
  Sender: FDA-Public Use
  Company Number: US-ABBOTT-06P-163-0321210-00

PATIENT
  Sex: Male

DRUGS (3)
  1. RITONAVIR SOFT GELATIN CAPSULES [Suspect]
     Indication: HIV INFECTION
     Route: 048
     Dates: start: 20050721
  2. FOSAMPRENAVIR [Concomitant]
     Indication: HIV INFECTION
     Route: 048
     Dates: start: 20050721
  3. ABCAVIR SULPHATE+LAMIVUDINE [Concomitant]
     Indication: HIV INFECTION
     Route: 048
     Dates: start: 20050721

REACTIONS (33)
  - ANOXIC ENCEPHALOPATHY [None]
  - BRAIN DEATH [None]
  - BRAIN HERNIATION [None]
  - BRAIN OEDEMA [None]
  - CARDIAC ARREST [None]
  - CHILLS [None]
  - DEPRESSED LEVEL OF CONSCIOUSNESS [None]
  - DIARRHOEA [None]
  - DISORIENTATION [None]
  - ENCEPHALITIS [None]
  - ENCEPHALOPATHY [None]
  - FRACTURE [None]
  - HAEMORRHAGE INTRACRANIAL [None]
  - HEAT STROKE [None]
  - HEPATIC ENZYME INCREASED [None]
  - HYPERTHERMIA MALIGNANT [None]
  - HYPOKALAEMIA [None]
  - HYPOXIA [None]
  - INFECTION [None]
  - INFLUENZA LIKE ILLNESS [None]
  - JOINT DISLOCATION [None]
  - LYMPHADENOPATHY [None]
  - MALAISE [None]
  - METABOLIC ACIDOSIS [None]
  - METABOLIC ENCEPHALOPATHY [None]
  - MUSCLE INJURY [None]
  - PUPIL FIXED [None]
  - RENAL FAILURE ACUTE [None]
  - RESPIRATORY FAILURE [None]
  - RHABDOMYOLYSIS [None]
  - ROAD TRAFFIC ACCIDENT [None]
  - SUBDURAL HAEMATOMA [None]
  - TROPONIN INCREASED [None]
